FAERS Safety Report 6277819-8 (Version None)
Quarter: 2009Q3

REPORT INFORMATION
  Report Type: 
  Country: None (occurrence: None)
  Receive Date: 20090717
  Receipt Date: 20090717
  Transmission Date: 20100115
  Serious: Yes (Life-Threatening, Other)
  Sender: FDA-Public Use
  Company Number: None

PATIENT
  Age: 48 Year
  Sex: Female
  Weight: 81.6475 kg

DRUGS (1)
  1. COPAXONE [Suspect]
     Indication: MULTIPLE SCLEROSIS
     Dosage: 20MG ONCE DAILY ONCE DAILY SUBCONJUNCTIVAL
     Route: 057
     Dates: start: 20090323, end: 20090417

REACTIONS (7)
  - HEADACHE [None]
  - HOMICIDAL IDEATION [None]
  - HYPOAESTHESIA FACIAL [None]
  - PERSONALITY CHANGE [None]
  - STOMATITIS [None]
  - SUICIDAL IDEATION [None]
  - WHEEZING [None]
